FAERS Safety Report 9444487 (Version 2)
Quarter: 2013Q3

REPORT INFORMATION
  Report Type: Spontaneous
  Country: IL (occurrence: IL)
  Receive Date: 20130807
  Receipt Date: 20130815
  Transmission Date: 20140515
  Serious: Yes (Hospitalization, Other)
  Sender: FDA-Public Use
  Company Number: IL-NOVOPROD-384525

PATIENT
  Age: 64 Year
  Sex: Male

DRUGS (14)
  1. VICTOZA [Suspect]
     Indication: TYPE 2 DIABETES MELLITUS
     Dosage: 1.8 MG, QD
     Route: 065
     Dates: start: 20100222
  2. LANTUS [Concomitant]
     Dosage: 22 U, QD
     Route: 065
  3. AMARYL [Concomitant]
     Dosage: UNK (4MGX1/DAY)
     Route: 065
  4. METFORMIN [Concomitant]
     Dosage: UNK (850MGX3/DAY)
     Route: 065
  5. CARTIA                             /00002701/ [Concomitant]
     Dosage: UNK (100MGX1/DAY)
     Route: 065
  6. CYMBALTA [Concomitant]
     Dosage: UNK (30MGX1/DAY)
     Route: 065
  7. CARDILOC [Concomitant]
     Dosage: UNK (2.5MGX2/DAY)
     Route: 065
  8. DISOTHIAZIDE [Concomitant]
     Dosage: UNK (25MGX1/DAY)
     Route: 065
  9. NORVASC [Concomitant]
     Dosage: UNK (5MGX2/DAY)
     Route: 065
  10. ENALAPRIL [Concomitant]
     Dosage: UNK (20MGX2/DAY)
     Route: 065
  11. LIPITOR [Concomitant]
     Dosage: UNK (40MGX1/DAY)
     Route: 065
  12. TRIBEMIN [Concomitant]
     Dosage: UNK (1 TAB X1/DAY)
     Route: 065
  13. LANSOPRAZOLE [Concomitant]
     Dosage: UNK (30 MGX1/DAY)
     Route: 065
  14. BROTIZOLAM [Concomitant]
     Dosage: UNK
     Route: 065

REACTIONS (1)
  - Pancreatic carcinoma [Not Recovered/Not Resolved]
